FAERS Safety Report 24759894 (Version 1)
Quarter: 2024Q4

REPORT INFORMATION
  Report Type: Spontaneous
  Country: IN (occurrence: IN)
  Receive Date: 20241220
  Receipt Date: 20241220
  Transmission Date: 20250115
  Serious: Yes (Hospitalization)
  Sender: TORRENT PHARMA INC.
  Company Number: IN-TORRENT-00003772

PATIENT
  Age: 26 Year
  Sex: Female

DRUGS (1)
  1. ARIPIPRAZOLE [Suspect]
     Active Substance: ARIPIPRAZOLE
     Indication: Mental disorder
     Dosage: 5 MG
     Route: 048

REACTIONS (2)
  - Akathisia [Recovered/Resolved]
  - Dissociative disorder [Unknown]
